FAERS Safety Report 6619786-0 (Version None)
Quarter: 2010Q1

REPORT INFORMATION
  Report Type: 
  Country: None (occurrence: None)
  Receive Date: 20100309
  Receipt Date: 20100302
  Transmission Date: 20100710
  Serious: Yes (Hospitalization, Other)
  Sender: FDA-Public Use
  Company Number: PHHO2010CZ00525

PATIENT
  Sex: Male
  Weight: 88 kg

DRUGS (5)
  1. CERTICAN [Suspect]
     Indication: LIVER TRANSPLANT
     Dosage: 1 MG, BID
     Route: 048
     Dates: start: 20100119
  2. CERTICAN [Suspect]
     Dosage: 1.5 MG, BID
  3. TACROLIMUS COMP-TAC+ [Suspect]
     Indication: LIVER TRANSPLANT
     Dosage: 12 MG, QD
     Route: 048
     Dates: start: 20091222
  4. TACROLIMUS COMP-TAC+ [Suspect]
     Dosage: 6 MG, QD
     Route: 048
  5. CELLCEPT [Suspect]
     Indication: LIVER TRANSPLANT
     Dosage: 2 G, QD
     Route: 048
     Dates: start: 20091222, end: 20100119

REACTIONS (2)
  - HEPATIC ENZYME INCREASED [None]
  - LIVER TRANSPLANT REJECTION [None]
